FAERS Safety Report 19962954 (Version 5)
Quarter: 2021Q4

REPORT INFORMATION
  Report Type: Spontaneous
  Country: JP (occurrence: JP)
  Receive Date: 20211018
  Receipt Date: 20211217
  Transmission Date: 20220304
  Serious: Yes (Death, Hospitalization, Disabling, Other)
  Sender: FDA-Public Use
  Company Number: JP-ASTELLAS-2021JP018440

PATIENT
  Age: 66 Year
  Sex: Male
  Weight: 46 kg

DRUGS (45)
  1. TACROLIMUS [Suspect]
     Active Substance: TACROLIMUS
     Indication: Prophylaxis against transplant rejection
     Dosage: 1 MG, ONCE DAILY, DESIGNATED TIME
     Route: 048
     Dates: start: 20170331, end: 20210913
  2. TACROLIMUS [Suspect]
     Active Substance: TACROLIMUS
     Indication: Prophylaxis against transplant rejection
     Dosage: 0.5 MG, ONCE DAILY, DESIGNATED TIME
     Route: 048
     Dates: start: 20170331, end: 20210913
  3. RABEPRAZOLE SODIUM [Concomitant]
     Active Substance: RABEPRAZOLE SODIUM
     Indication: Prophylaxis
     Dosage: 10 MG, ONCE DAILY, AFTER BREAKFAST
     Route: 048
     Dates: start: 20170310, end: 20210913
  4. MEDROL [Concomitant]
     Active Substance: METHYLPREDNISOLONE
     Indication: Prophylaxis against transplant rejection
     Dosage: 4 MG, ONCE DAILY, DESIGNATED TIME
     Route: 048
     Dates: start: 20170331
  5. CELLCEPT [Concomitant]
     Active Substance: MYCOPHENOLATE MOFETIL
     Indication: Prophylaxis against transplant rejection
     Dosage: 500 MG, TWICE DAILY, DESIGNATED TIME
     Route: 048
     Dates: start: 20170331, end: 20211003
  6. ASPIRIN [Concomitant]
     Active Substance: ASPIRIN
     Indication: Myocardial ischaemia
     Dosage: 100 MG, ONCE DAILY, AFTER BREAKFAST
     Route: 048
     Dates: start: 20170414
  7. LIVALO [Concomitant]
     Active Substance: PITAVASTATIN CALCIUM
     Indication: Myocardial ischaemia
     Dosage: 1 MG, ONCE DAILY, AFTER BREAKFAST
     Route: 048
     Dates: start: 20170415
  8. SULFAMETHOXAZOLE\TRIMETHOPRIM [Concomitant]
     Active Substance: SULFAMETHOXAZOLE\TRIMETHOPRIM
     Indication: Prophylaxis
     Dosage: 80 MG, THRICE WEEKLY, ORAL INTAKE ON MONDAY, WEDNESDAY, FRIDAY, AFTER BREAKFAST
     Route: 048
     Dates: start: 20170428
  9. SILODOSIN OD [Concomitant]
     Indication: Benign prostatic hyperplasia
     Dosage: 2 MG, TWICE DAILY, AFTER BREAKFAST AND DINNER
     Route: 048
     Dates: start: 20170810
  10. GARENOXACIN MESYLATE [Concomitant]
     Active Substance: GARENOXACIN MESYLATE
     Indication: Pneumonia
     Dosage: 400 MG, ONCE DAILY, AFTER DINNER
     Route: 048
     Dates: start: 20200110, end: 20200120
  11. GARENOXACIN MESYLATE [Concomitant]
     Active Substance: GARENOXACIN MESYLATE
     Indication: Bronchitis chronic
     Dosage: 400 MG, ONCE DAILY, AFTER BREAKFAST
     Route: 048
     Dates: start: 20210901, end: 20210910
  12. DIAMOX SEQUELS [Concomitant]
     Active Substance: ACETAZOLAMIDE
     Indication: Glaucoma
     Dosage: 250 MG, ONCE DAILY, AFTER BREAKFAST
     Route: 048
     Dates: start: 20210730, end: 20210910
  13. SOLU-MEDROL [Concomitant]
     Active Substance: METHYLPREDNISOLONE SODIUM SUCCINATE
     Indication: Haemophagocytic lymphohistiocytosis
     Dosage: 500 MG/DAY, UNKNOWN FREQ.
     Route: 041
     Dates: start: 20210924, end: 20210925
  14. SOLU-MEDROL [Concomitant]
     Active Substance: METHYLPREDNISOLONE SODIUM SUCCINATE
     Dosage: 250 MG/DAY, UNKNOWN FREQ.
     Route: 041
     Dates: start: 20210926, end: 20210926
  15. SOLU-MEDROL [Concomitant]
     Active Substance: METHYLPREDNISOLONE SODIUM SUCCINATE
     Dosage: 125 MG/DAY, UNKNOWN FREQ.
     Route: 041
     Dates: start: 20210927, end: 20210927
  16. SOLU-MEDROL [Concomitant]
     Active Substance: METHYLPREDNISOLONE SODIUM SUCCINATE
     Dosage: 40 MG/DAY, UNKNOWN FREQ.
     Route: 041
     Dates: start: 20210928, end: 20210928
  17. RITUXIMAB [Concomitant]
     Active Substance: RITUXIMAB
     Indication: Diffuse large B-cell lymphoma
     Route: 041
     Dates: start: 20210928, end: 20210928
  18. LEVOTHYROXINE [Concomitant]
     Active Substance: LEVOTHYROXINE
     Indication: Hypothyroidism
     Dosage: 25 ?G, ONCE DAILY, AFTER BREAKFAST
     Route: 048
     Dates: start: 20210929
  19. CYCLOPHOSPHAMIDE [Concomitant]
     Active Substance: CYCLOPHOSPHAMIDE
     Indication: Diffuse large B-cell lymphoma
     Dosage: 900 MG/DAY, UNKNOWN FREQ.
     Route: 041
     Dates: start: 20210929, end: 20210929
  20. DOXORUBICIN HYDROCHLORIDE [Concomitant]
     Active Substance: DOXORUBICIN HYDROCHLORIDE
     Indication: Diffuse large B-cell lymphoma
     Dosage: 80 MG/DAY, UNKNOWN FREQ.
     Route: 041
     Dates: start: 20210929, end: 20210929
  21. ONCOVIN [Concomitant]
     Active Substance: VINCRISTINE SULFATE
     Indication: Diffuse large B-cell lymphoma
     Dosage: 50 MG/DAY, UNKNOWN FREQ.
     Route: 041
     Dates: start: 20210929, end: 20210929
  22. PREDONINE [Concomitant]
     Active Substance: PREDNISOLONE
     Indication: Diffuse large B-cell lymphoma
     Dosage: 100 MG/DAY, UNKNOWN FREQ.
     Route: 042
     Dates: start: 20210929, end: 20211005
  23. THROMBOMODULIN ALFA [Concomitant]
     Active Substance: THROMBOMODULIN ALFA
     Indication: Disseminated intravascular coagulation
     Dosage: 20520 UNITS, UNKNOWN FREQ.
     Route: 041
     Dates: start: 20210929, end: 20211005
  24. PLATELETS [Concomitant]
     Active Substance: HUMAN PLATELET, ALLOGENIC
     Indication: Transfusion
     Dosage: 10 UNITS, UNKNOWN FREQ.
     Route: 065
     Dates: start: 20210929, end: 20211001
  25. PLATELETS [Concomitant]
     Active Substance: HUMAN PLATELET, ALLOGENIC
     Dosage: 20 UNITS, UNKNOWN FREQ.
     Route: 065
     Dates: start: 20211002, end: 20211003
  26. PLATELETS [Concomitant]
     Active Substance: HUMAN PLATELET, ALLOGENIC
     Dosage: 10 UNITS, UNKNOWN FREQ.
     Route: 065
     Dates: start: 20211004, end: 20211004
  27. PLATELETS [Concomitant]
     Active Substance: HUMAN PLATELET, ALLOGENIC
     Dosage: 20 UNITS, UNKNOWN FREQ.
     Route: 065
     Dates: start: 20211005, end: 20211007
  28. PLATELETS [Concomitant]
     Active Substance: HUMAN PLATELET, ALLOGENIC
     Dosage: 30 UNITS, UNKNOWN FREQ.
     Route: 065
     Dates: start: 20211008, end: 20211008
  29. PLATELETS [Concomitant]
     Active Substance: HUMAN PLATELET, ALLOGENIC
     Dosage: 20 UNITS, UNKNOWN FREQ.
     Route: 065
     Dates: start: 20211009, end: 20211010
  30. HUMAN RED BLOOD CELL [Concomitant]
     Active Substance: HUMAN RED BLOOD CELL
     Indication: Transfusion
     Dosage: 2 UNITS, UNKNOWN FREQ.
     Route: 065
     Dates: start: 20210929, end: 20210929
  31. HUMAN RED BLOOD CELL [Concomitant]
     Active Substance: HUMAN RED BLOOD CELL
     Dosage: 2 UNITS, UNKNOWN FREQ.
     Route: 065
     Dates: start: 20211003, end: 20211003
  32. HUMAN PLASMA [Concomitant]
     Active Substance: HUMAN PLASMA
     Indication: Transfusion
     Route: 065
     Dates: start: 20210930, end: 20211007
  33. HUMAN PLASMA [Concomitant]
     Active Substance: HUMAN PLASMA
     Route: 065
     Dates: start: 20211008, end: 20211008
  34. HUMAN PLASMA [Concomitant]
     Active Substance: HUMAN PLASMA
     Route: 065
     Dates: start: 20211009, end: 20211010
  35. FILGRASTIM [Concomitant]
     Active Substance: FILGRASTIM
     Indication: Neutrophil count decreased
     Dosage: 150 ?G/DAY, UNKNOWN FREQ.
     Route: 041
     Dates: start: 20211002, end: 20211010
  36. MICAFUNGIN SODIUM [Concomitant]
     Active Substance: MICAFUNGIN SODIUM
     Indication: Infection
     Dosage: 50 MG/DAY, UNKNOWN FREQ.
     Route: 041
     Dates: start: 20211002, end: 20211005
  37. MEROPENEM [Concomitant]
     Active Substance: MEROPENEM
     Indication: Infection
     Route: 041
     Dates: start: 20211002, end: 20211010
  38. TEICOPLANIN [Concomitant]
     Active Substance: TEICOPLANIN
     Indication: Infection
     Dosage: 800 MG/DAY, UNKNOWN FREQ.
     Route: 041
     Dates: start: 20211002, end: 20211003
  39. TEICOPLANIN [Concomitant]
     Active Substance: TEICOPLANIN
     Dosage: 400 MG/DAY, UNKNOWN FREQ.
     Route: 041
     Dates: start: 20211004
  40. HUMAN RED BLOOD CELL [Concomitant]
     Active Substance: HUMAN RED BLOOD CELL
     Indication: Transfusion
     Route: 065
     Dates: start: 20211002, end: 20211002
  41. HUMAN RED BLOOD CELL [Concomitant]
     Active Substance: HUMAN RED BLOOD CELL
     Route: 065
     Dates: start: 20211004, end: 20211006
  42. HUMAN RED BLOOD CELL [Concomitant]
     Active Substance: HUMAN RED BLOOD CELL
     Route: 065
     Dates: start: 20211008, end: 20211008
  43. HUMAN RED BLOOD CELL [Concomitant]
     Active Substance: HUMAN RED BLOOD CELL
     Route: 065
     Dates: start: 20211009, end: 20211009
  44. AMBISOME [Concomitant]
     Active Substance: AMPHOTERICIN B
     Indication: Infection
     Dosage: 130 MG/DAY, UNKNOWN FREQ.
     Route: 041
     Dates: start: 20211005, end: 20211010
  45. LEVOFLOXACIN [Concomitant]
     Active Substance: LEVOFLOXACIN
     Indication: Infection
     Route: 041
     Dates: start: 20211008, end: 20211010

REACTIONS (10)
  - Diffuse large B-cell lymphoma [Fatal]
  - Renal impairment [Not Recovered/Not Resolved]
  - Drug level increased [Recovering/Resolving]
  - Inflammatory marker increased [Not Recovered/Not Resolved]
  - Nephropathy [Not Recovered/Not Resolved]
  - Intraductal papillary mucinous neoplasm [Unknown]
  - Pneumonia [Recovered/Resolved]
  - Bronchitis chronic [Recovering/Resolving]
  - Colon cancer [Recovering/Resolving]
  - Hypothyroidism [Unknown]

NARRATIVE: CASE EVENT DATE: 20200110
